FAERS Safety Report 9402881 (Version 1)
Quarter: 2013Q3

REPORT INFORMATION
  Report Type: Report from Study
  Country: US (occurrence: US)
  Receive Date: 20130716
  Receipt Date: 20130716
  Transmission Date: 20140515
  Serious: Yes (Hospitalization, Other)
  Sender: FDA-Public Use
  Company Number: US-ABBOTT-13P-163-1116282-00

PATIENT
  Age: 26 Year
  Sex: Male

DRUGS (10)
  1. HUMIRA [Suspect]
     Indication: CROHN^S DISEASE
     Dates: start: 201212, end: 20130614
  2. NEXIUM [Concomitant]
     Indication: GASTRIC ULCER
  3. CYMBALTA [Concomitant]
     Indication: DEPRESSION
  4. CYMBALTA [Concomitant]
     Indication: CROHN^S DISEASE
  5. CYMBALTA [Concomitant]
     Indication: PAIN
  6. LYRICA [Concomitant]
     Indication: CROHN^S DISEASE
  7. LYRICA [Concomitant]
     Indication: PAIN
  8. REMERON [Concomitant]
     Indication: INSOMNIA
     Dosage: AT BEDTIME
  9. ATIVAN [Concomitant]
     Indication: ANXIETY
  10. DILAUDID [Concomitant]
     Indication: ABDOMINAL PAIN
     Dosage: 2-4MG

REACTIONS (5)
  - Post procedural bile leak [Recovered/Resolved]
  - Cholecystectomy [Recovered/Resolved]
  - Abdominal distension [Recovered/Resolved]
  - Diarrhoea [Recovered/Resolved]
  - Pain [Recovered/Resolved]
